FAERS Safety Report 20068218 (Version 1)
Quarter: 2021Q4

REPORT INFORMATION
  Report Type: Spontaneous
  Country: US (occurrence: None)
  Receive Date: 20211112
  Receipt Date: 20211112
  Transmission Date: 20220304
  Serious: Yes (Other)
  Sender: FDA-Public Use
  Company Number: None

PATIENT
  Age: 74 Year
  Sex: Female
  Weight: 89.55 kg

DRUGS (1)
  1. REGEN-COV [Suspect]
     Active Substance: CASIRIVIMAB\IMDEVIMAB
     Indication: COVID-19
     Dosage: FREQUENCY : ONCE;?
     Route: 042
     Dates: start: 20210801, end: 20210801

REACTIONS (9)
  - Joint stiffness [None]
  - Arthralgia [None]
  - Insomnia [None]
  - Chills [None]
  - Night sweats [None]
  - Confusional state [None]
  - Fatigue [None]
  - Dizziness [None]
  - Gait disturbance [None]

NARRATIVE: CASE EVENT DATE: 20210815
